FAERS Safety Report 15333607 (Version 1)
Quarter: 2018Q3

REPORT INFORMATION
  Report Type: Spontaneous
  Country: US (occurrence: US)
  Receive Date: 20180830
  Receipt Date: 20180830
  Transmission Date: 20181010
  Serious: No
  Sender: FDA-Public Use
  Company Number: US-TEVA-2018-US-949060

PATIENT
  Age: 91 Year
  Sex: Female

DRUGS (1)
  1. MODAFINIL. [Suspect]
     Active Substance: MODAFINIL
     Route: 065
     Dates: start: 20180820

REACTIONS (2)
  - Insomnia [Unknown]
  - Nervousness [Unknown]

NARRATIVE: CASE EVENT DATE: 20180823
